FAERS Safety Report 7668337-0 (Version None)
Quarter: 2011Q3

REPORT INFORMATION
  Report Type: 
  Country: None (occurrence: None)
  Receive Date: 20110808
  Receipt Date: 20110802
  Transmission Date: 20111222
  Serious: Yes (Other)
  Sender: FDA-Public Use
  Company Number: US-PFIZER INC-HQWYE932804AUG04

PATIENT
  Sex: Female
  Weight: 68 kg

DRUGS (3)
  1. PREMARIN [Suspect]
     Indication: HORMONE REPLACEMENT THERAPY
     Dosage: 0.625, UNK
     Route: 048
     Dates: start: 19930101, end: 19960828
  2. PROVERA [Suspect]
     Indication: HORMONE REPLACEMENT THERAPY
     Dosage: 5, UNK
     Route: 048
     Dates: start: 19930101, end: 19960828
  3. PREMPRO [Suspect]
     Indication: HORMONE REPLACEMENT THERAPY
     Dosage: 0.625/2.5, UNK
     Route: 048
     Dates: start: 19960829, end: 19980707

REACTIONS (1)
  - BREAST CANCER METASTATIC [None]
